FAERS Safety Report 6474884-X (Version None)
Quarter: 2009Q4

REPORT INFORMATION
  Report Type: 
  Country: None (occurrence: None)
  Receive Date: 20091204
  Receipt Date: 20090428
  Transmission Date: 20100525
  Serious: No
  Sender: FDA-Public Use
  Company Number: US-ELI_LILLY_AND_COMPANY-US200902006717

PATIENT
  Sex: Female
  Weight: 65.76 kg

DRUGS (17)
  1. FORTEO [Suspect]
     Indication: OSTEOPOROSIS
     Dosage: 20 UG, DAILY (1/D)
     Dates: start: 20081101
  2. CYMBALTA [Concomitant]
  3. AVAPRO [Concomitant]
  4. MIRAPEX [Concomitant]
  5. NIFEDIPINE [Concomitant]
  6. TUSSILAR [Concomitant]
  7. MIRALAX [Concomitant]
  8. FLONASE [Concomitant]
  9. FOLIC ACID [Concomitant]
  10. TYLENOL                                 /SCH/ [Concomitant]
  11. RESYL [Concomitant]
  12. CALCIUM CARBONATE W/VITAMIN D /00944201/ [Concomitant]
  13. MULTI-VITAMIN [Concomitant]
  14. METHOTREXATE [Concomitant]
  15. JANIMINE [Concomitant]
  16. PRAVASTATIN [Concomitant]
  17. FOSAMAX [Concomitant]

REACTIONS (1)
  - NO ADVERSE EVENT [None]
